FAERS Safety Report 9685599 (Version 1)
Quarter: 2013Q4

REPORT INFORMATION
  Report Type: Spontaneous
  Country: US (occurrence: US)
  Receive Date: 20131113
  Receipt Date: 20131113
  Transmission Date: 20140711
  Serious: Yes (Hospitalization)
  Sender: FDA-Public Use
  Company Number: US-ASTRAZENECA-2013SE82431

PATIENT
  Sex: Male

DRUGS (3)
  1. LISINOPRIL [Suspect]
     Indication: HYPERTENSION
     Route: 048
     Dates: start: 1998
  2. TOPROL-XL [Suspect]
     Indication: HYPERTENSION
     Route: 048
  3. OTHER UNSPECIFIED MEDS [Concomitant]

REACTIONS (7)
  - Hypertension [Unknown]
  - Drug ineffective [Unknown]
  - Feeling of relaxation [Recovered/Resolved]
  - Adverse event [Recovered/Resolved]
  - Abdominal discomfort [Recovered/Resolved]
  - Headache [Recovered/Resolved]
  - Off label use [Recovered/Resolved]
